FAERS Safety Report 5903306-X (Version None)
Quarter: 2008Q3

REPORT INFORMATION
  Report Type: 
  Country: None (occurrence: None)
  Receive Date: 20080930
  Receipt Date: 20080924
  Transmission Date: 20090109
  Serious: Yes (Disabling)
  Sender: FDA-Public Use
  Company Number: B0536597A

PATIENT
  Age: 21 Year
  Sex: Male

DRUGS (5)
  1. MALARONE [Suspect]
     Indication: MALARIA PROPHYLAXIS
     Dosage: 1TAB PER DAY
     Dates: start: 20080901
  2. HEPATYRIX [Concomitant]
     Indication: PROPHYLAXIS
     Dosage: 1INJ SINGLE DOSE
     Route: 030
     Dates: start: 20080826, end: 20080826
  3. TETANUS + DIPTHERIA VACCINE [Concomitant]
     Indication: PROPHYLAXIS
     Route: 065
     Dates: start: 20080826, end: 20080826
  4. IMODIUM [Concomitant]
     Indication: DIARRHOEA
     Dosage: 2MG UNKNOWN
     Route: 065
  5. NOROXIN [Concomitant]
     Indication: DIARRHOEA
     Dosage: 400MG TWICE PER DAY
     Route: 065

REACTIONS (16)
  - ABDOMINAL PAIN [None]
  - ABNORMAL BEHAVIOUR [None]
  - AGGRESSION [None]
  - ALCOHOL INTERACTION [None]
  - ALCOHOL USE [None]
  - ANAEMIA [None]
  - CONSTIPATION [None]
  - DEMENTIA [None]
  - DRUG INTERACTION [None]
  - IMPRISONMENT [None]
  - INSOMNIA [None]
  - LOSS OF EMPLOYMENT [None]
  - MEMORY IMPAIRMENT [None]
  - RESTLESSNESS [None]
  - THINKING ABNORMAL [None]
  - VOMITING [None]
